FAERS Safety Report 7283127-9 (Version None)
Quarter: 2011Q1

REPORT INFORMATION
  Report Type: 
  Country: None (occurrence: None)
  Receive Date: 20110209
  Receipt Date: 20101027
  Transmission Date: 20110831
  Serious: No
  Sender: FDA-Public Use
  Company Number: A0889108A

PATIENT
  Age: 64 Year
  Sex: Male

DRUGS (2)
  1. PAXIL CR [Suspect]
     Dosage: 12.5MG PER DAY
     Route: 048
     Dates: start: 20030201, end: 20040101
  2. PRILOSEC [Concomitant]

REACTIONS (1)
  - THERAPEUTIC RESPONSE DELAYED [None]
